FAERS Safety Report 7290810-8 (Version None)
Quarter: 2011Q1

REPORT INFORMATION
  Report Type: 
  Country: None (occurrence: None)
  Receive Date: 20110214
  Receipt Date: 20110211
  Transmission Date: 20110831
  Serious: Yes (Other)
  Sender: FDA-Public Use
  Company Number: CN-ROCHE-759158

PATIENT
  Age: 19 Year
  Sex: Male

DRUGS (1)
  1. PEGASYS [Suspect]
     Indication: HEPATITIS C
     Route: 058
     Dates: start: 20100712, end: 20110207

REACTIONS (3)
  - FALL [None]
  - EXTRASYSTOLES [None]
  - ATRIAL FIBRILLATION [None]
